FAERS Safety Report 8543979-9 (Version None)
Quarter: 2012Q3

REPORT INFORMATION
  Report Type: 
  Country: None (occurrence: None)
  Receive Date: 20120717
  Receipt Date: 20120702
  Transmission Date: 20120928
  Serious: Yes (Hospitalization)
  Sender: FDA-Public Use
  Company Number: 2012-3085

PATIENT
  Age: 27 Year
  Sex: Female

DRUGS (1)
  1. SOMATULINE DEPOT [Suspect]
     Indication: ACROMEGALY
     Dosage: 120 MG (120 MG, 1 IN 28 D) SUBCUTANEOUS
     Route: 058
     Dates: start: 20110520

REACTIONS (2)
  - PITUITARY TUMOUR REMOVAL [None]
  - DRUG INEFFECTIVE [None]
